FAERS Safety Report 15535209 (Version 2)
Quarter: 2018Q4

REPORT INFORMATION
  Report Type: Report from Study
  Country: FR (occurrence: FR)
  Receive Date: 20181022
  Receipt Date: 20181127
  Transmission Date: 20190205
  Serious: Yes (Hospitalization)
  Sender: FDA-Public Use
  Company Number: FR-ROCHE-2200538

PATIENT
  Age: 61 Year
  Sex: Female
  Weight: 60 kg

DRUGS (4)
  1. RO 6874281 (FAP IL2V MAB) [Suspect]
     Active Substance: RO-6874281
     Indication: NEOPLASM
     Dosage: DATE OF LAST DOSE PRIOR TO SAE: 09/OCT/2018
     Route: 042
     Dates: start: 20180911
  2. INDOCID [Concomitant]
     Active Substance: INDOMETHACIN
     Route: 065
     Dates: start: 20181009
  3. TRASTUZUMAB. [Suspect]
     Active Substance: TRASTUZUMAB
     Indication: NEOPLASM
     Dosage: DATE OF LAST DOSE PRIOR TO SAE: 09/OCT/2018
     Route: 042
     Dates: start: 20180911
  4. DOLIPRANE [Concomitant]
     Active Substance: ACETAMINOPHEN
     Route: 065

REACTIONS (1)
  - Blood bilirubin increased [Recovered/Resolved]

NARRATIVE: CASE EVENT DATE: 20181010
